FAERS Safety Report 24238510 (Version 1)
Quarter: 2024Q3

REPORT INFORMATION
  Report Type: Spontaneous
  Country: US (occurrence: US)
  Receive Date: 20240822
  Receipt Date: 20240822
  Transmission Date: 20241016
  Serious: No
  Sender: GRANULES INDIA
  Company Number: US-GRANULES-US-2024GRASPO00362

PATIENT
  Age: 80 Year
  Sex: Female
  Weight: 90.71 kg

DRUGS (2)
  1. GUAIFENESIN [Suspect]
     Active Substance: GUAIFENESIN
     Indication: Nasopharyngitis
     Dosage: ONE TABLET AT MORNING AND ONE TABLET AT NIGHT
     Route: 048
     Dates: start: 20240805, end: 20240807
  2. GUAIFENESIN [Suspect]
     Active Substance: GUAIFENESIN
     Indication: Nasopharyngitis

REACTIONS (2)
  - Peripheral swelling [Not Recovered/Not Resolved]
  - Product use in unapproved indication [Unknown]

NARRATIVE: CASE EVENT DATE: 20240805
